FAERS Safety Report 9645913 (Version 1)
Quarter: 2013Q4

REPORT INFORMATION
  Report Type: Spontaneous
  Country: US (occurrence: None)
  Receive Date: 20131024
  Receipt Date: 20131024
  Transmission Date: 20140711
  Serious: No
  Sender: FDA-Public Use
  Company Number: None

PATIENT
  Sex: 0

DRUGS (8)
  1. FORTEO [Suspect]
     Route: 058
     Dates: start: 20130727
  2. SYNTHROID [Concomitant]
  3. CARVEDIOLOL [Concomitant]
  4. ISOSORBIDE [Concomitant]
  5. ASPIRIN [Concomitant]
  6. VIACTIV [Concomitant]
  7. VITAMIN D [Concomitant]
  8. VITAMIN K [Concomitant]

REACTIONS (5)
  - Abdominal distension [None]
  - Pollakiuria [None]
  - Urine output increased [None]
  - Injection site bruising [None]
  - Fluid intake reduced [None]
